FAERS Safety Report 18063892 (Version 1)
Quarter: 2020Q3

REPORT INFORMATION
  Report Type: Spontaneous
  Country: US (occurrence: US)
  Receive Date: 20200724
  Receipt Date: 20200724
  Transmission Date: 20201103
  Serious: Yes (Hospitalization)
  Sender: FDA-Public Use
  Company Number: US-MACLEODS PHARMACEUTICALS US LTD-MAC2020027395

PATIENT

DRUGS (2)
  1. QUETIAPINE 50 MG [Suspect]
     Active Substance: QUETIAPINE
     Indication: INSOMNIA
     Dosage: 50 MILLIGRAM, QD
     Route: 065
  2. QUETIAPINE 50 MG [Suspect]
     Active Substance: QUETIAPINE
     Indication: DEPRESSION

REACTIONS (3)
  - Suicidal ideation [Recovering/Resolving]
  - Agranulocytosis [Recovered/Resolved]
  - Leukopenia [Recovered/Resolved]
